FAERS Safety Report 11793035 (Version 1)
Quarter: 2015Q4

REPORT INFORMATION
  Report Type: Spontaneous
  Country: US (occurrence: None)
  Receive Date: 20151201
  Receipt Date: 20151201
  Transmission Date: 20160305
  Serious: Yes (Hospitalization)
  Sender: FDA-Public Use
  Company Number: None

PATIENT
  Age: 74 Year
  Sex: Female

DRUGS (1)
  1. AFINITOR [Suspect]
     Active Substance: EVEROLIMUS
     Indication: BREAST CANCER
     Dosage: 16-OCT-2015 TO NOVEMBER
     Route: 048
     Dates: start: 20151016

REACTIONS (2)
  - Immune system disorder [None]
  - Eye movement disorder [None]

NARRATIVE: CASE EVENT DATE: 20151126
